FAERS Safety Report 16973790 (Version 1)
Quarter: 2019Q4

REPORT INFORMATION
  Report Type: Spontaneous
  Country: FR (occurrence: FR)
  Receive Date: 20191030
  Receipt Date: 20191030
  Transmission Date: 20200122
  Serious: Yes (Hospitalization)
  Sender: FDA-Public Use
  Company Number: FR-ACCORD-159144

PATIENT
  Age: 85 Year
  Sex: Male
  Weight: 70 kg

DRUGS (9)
  1. AUGMENTIN [Suspect]
     Active Substance: AMOXICILLIN\CLAVULANATE POTASSIUM
     Indication: PNEUMONIA ASPIRATION
     Dosage: 1-1-1
     Route: 048
     Dates: start: 20190912, end: 20190916
  2. LOVENOX [Suspect]
     Active Substance: ENOXAPARIN SODIUM
     Indication: THROMBOSIS PROPHYLAXIS
     Dosage: 0-0-1
     Route: 058
     Dates: start: 20190911, end: 20191004
  3. ASPEGIC [Concomitant]
     Indication: CARDIAC FAILURE
     Dosage: 0-1-0
     Route: 048
     Dates: end: 20190915
  4. SERESTA [Concomitant]
     Active Substance: OXAZEPAM
     Indication: ANXIETY
     Dosage: 0-0-1, STRENGTH: 10 MG
     Route: 048
     Dates: end: 20190915
  5. PANTOPRAZOLE MYLAN [Suspect]
     Active Substance: PANTOPRAZOLE SODIUM
     Indication: PROPHYLAXIS AGAINST GASTROINTESTINAL ULCER
     Dosage: 1-0-0, STRENGTH: 20 MG
     Route: 048
     Dates: start: 20190910, end: 20191003
  6. XATRAL LP [Suspect]
     Active Substance: ALFUZOSIN
     Indication: URINARY RETENTION
     Dosage: 0-0-1, STRENGTH: 10 MG
     Route: 048
     Dates: start: 20190911
  7. LEVOTHYROX [Concomitant]
     Active Substance: LEVOTHYROXINE
     Indication: HYPOTHYROIDISM
     Dosage: 1-0-0, STRENGTH: 100 MICROGRAMS, SCORED TABLET
     Route: 048
  8. HYDROCORTISONE ROUSSEL [Concomitant]
     Active Substance: HYDROCORTISONE
     Indication: ADRENAL INSUFFICIENCY
     Dosage: 4-2-0, STRENGTH: 10 MG
     Route: 048
  9. FINASTERIDE ACCORD [Suspect]
     Active Substance: FINASTERIDE
     Indication: URINARY RETENTION
     Dosage: STRENGTH: 5 MG, 1-0-0
     Route: 048
     Dates: start: 20190912, end: 20190916

REACTIONS (3)
  - Hepatitis [Recovered/Resolved]
  - Hepatitis acute [Recovered/Resolved]
  - Cholestasis [Recovered/Resolved]

NARRATIVE: CASE EVENT DATE: 20190916
